FAERS Safety Report 8112204-5 (Version None)
Quarter: 2011Q4

REPORT INFORMATION
  Report Type: 
  Country: None (occurrence: None)
  Receive Date: 20111223
  Receipt Date: 20111020
  Transmission Date: 20120403
  Serious: Yes (Other)
  Sender: FDA-Public Use
  Company Number: PHEH2011US07563

PATIENT
  Age: 11 Year
  Sex: Male

DRUGS (3)
  1. MELATONIN [Concomitant]
  2. ALLERGY MEDICATION (NO INGREDIENTS/SUBSTANCES) [Concomitant]
  3. FOCALIN XR [Suspect]
     Dosage: 20 MG, QD  : 5 MG, QD : 15 MG, QD

REACTIONS (2)
  - HEADACHE [None]
  - AGGRESSION [None]
